FAERS Safety Report 6091179-7 (Version None)
Quarter: 2009Q1

REPORT INFORMATION
  Report Type: 
  Country: None (occurrence: None)
  Receive Date: 20090225
  Receipt Date: 20090220
  Transmission Date: 20090719
  Serious: Yes (Hospitalization, Other)
  Sender: FDA-Public Use
  Company Number: GB-BRISTOL-MYERS SQUIBB COMPANY-14515597

PATIENT
  Age: 63 Year
  Sex: Male

DRUGS (4)
  1. APROVEL [Suspect]
     Dosage: APROVEL 300MG IN THE MORNING AND 150MG IN THE EVENING.
  2. ASPIRIN [Suspect]
  3. ATORVASTATIN [Suspect]
  4. FRUSEMIDE [Suspect]

REACTIONS (1)
  - CORONARY ARTERY BYPASS [None]
